FAERS Safety Report 12332722 (Version 2)
Quarter: 2016Q2

REPORT INFORMATION
  Report Type: Report from Study
  Country: US (occurrence: US)
  Receive Date: 20160428
  Receipt Date: 20160527
  Transmission Date: 20160815
  Serious: Yes (Hospitalization)
  Sender: FDA-Public Use
  Company Number: US-CORCEPT THERAPEUTICS INC.-US-2016CRT000049

PATIENT

DRUGS (6)
  1. MORPHINE [Concomitant]
     Active Substance: MORPHINE
     Indication: PRODUCT USED FOR UNKNOWN INDICATION
     Dosage: UNK
  2. LABETALOL [Concomitant]
     Active Substance: LABETALOL\LABETALOL HYDROCHLORIDE
     Indication: PRODUCT USED FOR UNKNOWN INDICATION
     Dosage: UNK
  3. FLUCONAZOLE. [Concomitant]
     Active Substance: FLUCONAZOLE
     Indication: FUNGAL INFECTION
     Dosage: 2 DF, PER DAY
     Dates: start: 20160316
  4. KORLYM [Suspect]
     Active Substance: MIFEPRISTONE
     Indication: PITUITARY-DEPENDENT CUSHING^S SYNDROME
     Dosage: 300 MG, DAILY
     Route: 048
     Dates: start: 201602, end: 201603
  5. KORLYM [Suspect]
     Active Substance: MIFEPRISTONE
     Dosage: 150 MG, DAILY
     Dates: start: 201603, end: 201604
  6. XANAX [Concomitant]
     Active Substance: ALPRAZOLAM
     Indication: PRODUCT USED FOR UNKNOWN INDICATION
     Dosage: UNK

REACTIONS (9)
  - Fungal infection [Unknown]
  - Somnolence [Unknown]
  - Incorrect dose administered [Not Recovered/Not Resolved]
  - Nerve compression [Not Recovered/Not Resolved]
  - Blood potassium decreased [Recovering/Resolving]
  - Pneumonia [Unknown]
  - Pollakiuria [Unknown]
  - Blood sodium decreased [Not Recovered/Not Resolved]
  - Vomiting [Unknown]

NARRATIVE: CASE EVENT DATE: 2016
